FAERS Safety Report 12128260 (Version 1)
Quarter: 2016Q1

REPORT INFORMATION
  Report Type: Report from Study
  Country: CA (occurrence: CA)
  Receive Date: 20160229
  Receipt Date: 20160229
  Transmission Date: 20160526
  Serious: Yes (Other)
  Sender: FDA-Public Use
  Company Number: CA-REGENERON PHARMACEUTICALS, INC.-2016-12886

PATIENT

DRUGS (1)
  1. EYLEA [Suspect]
     Active Substance: AFLIBERCEPT
     Indication: DIABETIC RETINAL OEDEMA
     Dosage: UNK
     Route: 031
     Dates: start: 20160218

REACTIONS (4)
  - Vision blurred [Unknown]
  - Blindness transient [Recovered/Resolved]
  - Eye pain [Recovering/Resolving]
  - Foreign body sensation in eyes [Unknown]

NARRATIVE: CASE EVENT DATE: 20160218
